FAERS Safety Report 25131257 (Version 1)
Quarter: 2025Q1

REPORT INFORMATION
  Report Type: Spontaneous
  Country: BG (occurrence: BG)
  Receive Date: 20250327
  Receipt Date: 20250327
  Transmission Date: 20250409
  Serious: Yes (Hospitalization)
  Sender: ROCHE
  Company Number: BG-BoehringerIngelheim-2025-BI-016520

PATIENT
  Age: 43 Year
  Sex: Female

DRUGS (1)
  1. ALTEPLASE [Suspect]
     Active Substance: ALTEPLASE
     Indication: Basilar artery thrombosis
     Route: 042

REACTIONS (2)
  - Nervous system disorder [Recovered/Resolved]
  - Diplopia [Recovered/Resolved]
